FAERS Safety Report 9953692 (Version 1)
Quarter: 2014Q1

REPORT INFORMATION
  Report Type: Spontaneous
  Country: US (occurrence: US)
  Receive Date: 20140304
  Receipt Date: 20140304
  Transmission Date: 20141002
  Serious: Yes (Hospitalization, Other)
  Sender: FDA-Public Use
  Company Number: US-BAYER-2014-029578

PATIENT
  Age: 46 Year
  Sex: Female

DRUGS (15)
  1. YAZ [Suspect]
  2. KLONOPIN [Concomitant]
     Dosage: 0.5MG 3 TIMES DAILY
     Dates: start: 20100518
  3. DARVOCET-N [Concomitant]
     Dosage: 100-650 MG EVERY 4 HOURS
     Dates: start: 20100518
  4. ULTRAM [Concomitant]
     Dosage: 50 MG, UNK
  5. CLONAZEPAM [Concomitant]
  6. GABAPENTIN [Concomitant]
  7. MOTRIN [Concomitant]
     Dosage: 400 MG, UNK
  8. LEXAPRO [Concomitant]
     Dosage: 10 MG, UNK
  9. NEXIUM [Concomitant]
     Dosage: 40 MG, TWO TIMES DAILY
  10. IBUPROFEN [Concomitant]
     Dosage: 800 MG EVERY 4-6 HOURS
  11. COPAXONE [Concomitant]
     Dosage: 20 MG ONCE DAILY AT BEDTIME
     Route: 058
  12. VICODIN [Concomitant]
     Dosage: 5-500 MG EVERY 4-6 HOURS
     Dates: start: 20100518
  13. NEURONTIN [Concomitant]
     Dosage: 100 MG THREE TIMES DAILY
     Dates: start: 20100520
  14. CYANOCOBALAMIN [Concomitant]
     Dosage: 100 MCG/ML, UNK
     Dates: start: 20100603
  15. DICLOFENAC SODIUM [Concomitant]
     Dosage: 50 MG, 1 TABLET 3 TIMES DAILY
     Dates: start: 20100603

REACTIONS (3)
  - Pulmonary embolism [None]
  - Deep vein thrombosis [None]
  - Thrombophlebitis superficial [None]
